FAERS Safety Report 4626419-1 (Version None)
Quarter: 2005Q2

REPORT INFORMATION
  Report Type: 
  Country: None (occurrence: None)
  Receive Date: 20050404
  Receipt Date: 20050311
  Transmission Date: 20051028
  Serious: Yes (Hospitalization)
  Sender: FDA-Public Use
  Company Number: PHEH2005US03034

PATIENT
  Age: 58 Year
  Sex: Female
  Weight: 49 kg

DRUGS (4)
  1. ELIDEL [Suspect]
     Indication: ECZEMA
     Dosage: UNK, BID
     Route: 061
     Dates: start: 20030401, end: 20050301
  2. PROTOPIC [Concomitant]
     Indication: ECZEMA
     Dosage: UNK, BID
     Route: 061
     Dates: start: 20030401, end: 20050301
  3. BETASERON [Concomitant]
     Indication: MULTIPLE SCLEROSIS
     Dates: start: 20031201, end: 20040701
  4. COPAXONE [Concomitant]
     Indication: MULTIPLE SCLEROSIS
     Dates: start: 20031201, end: 20040701

REACTIONS (4)
  - ASTHENIA [None]
  - B-CELL LYMPHOMA [None]
  - LYMPHADENOPATHY [None]
  - PYREXIA [None]
